FAERS Safety Report 9345149 (Version 1)
Quarter: 2013Q2

REPORT INFORMATION
  Report Type: Other
  Country: IT (occurrence: IT)
  Receive Date: 20130612
  Receipt Date: 20130612
  Transmission Date: 20140414
  Serious: Yes (Hospitalization)
  Sender: FDA-Public Use
  Company Number: IT-ACTAVIS-2013-10837

PATIENT
  Age: 16 Year
  Sex: Female

DRUGS (3)
  1. ALPRAZOLAM (UNKNOWN) [Suspect]
     Indication: INTENTIONAL OVERDOSE
     Dosage: 8.5 MG, SINGLE
     Route: 048
     Dates: start: 20130515, end: 20130515
  2. RISPERDAL [Concomitant]
     Indication: DEPERSONALISATION
     Dosage: UNK
     Route: 065
     Dates: start: 20120101, end: 20130515
  3. DELORAZEPAM [Concomitant]
     Indication: ANXIETY
     Dosage: UNK
     Route: 065
     Dates: start: 20120101, end: 20130515

REACTIONS (4)
  - Sedation [Recovered/Resolved]
  - Confusional state [Recovered/Resolved]
  - Intentional drug misuse [Recovered/Resolved]
  - Overdose [Recovered/Resolved]
